FAERS Safety Report 25566736 (Version 3)
Quarter: 2025Q3

REPORT INFORMATION
  Report Type: Spontaneous
  Country: US (occurrence: US)
  Receive Date: 20250716
  Receipt Date: 20250815
  Transmission Date: 20251020
  Serious: No
  Sender: PFIZER
  Company Number: US-PFIZER INC-202500141439

PATIENT
  Age: 12 Year
  Sex: Male

DRUGS (1)
  1. NGENLA [Suspect]
     Active Substance: SOMATROGON-GHLA
     Dosage: 22 MG, WEEKLY

REACTIONS (4)
  - Device issue [Unknown]
  - Poor quality device used [Unknown]
  - Device leakage [Unknown]
  - Drug dose omission by device [Unknown]
